FAERS Safety Report 6719089-X (Version None)
Quarter: 2010Q2

REPORT INFORMATION
  Report Type: 
  Country: None (occurrence: None)
  Receive Date: 20100511
  Receipt Date: 20100428
  Transmission Date: 20101027
  Serious: Yes (Death, Other)
  Sender: FDA-Public Use
  Company Number: US-TYCO HEALTHCARE/MALLINCKRODT-T201001117

PATIENT
  Age: 24 Year
  Sex: Male

DRUGS (3)
  1. TEMAZEPAM [Suspect]
     Dosage: UNK
  2. ALL OTHER THERAPEUTIC PRODUCTS [Suspect]
     Dosage: UNK
  3. ETHANOL [Suspect]
     Dosage: UNK

REACTIONS (4)
  - ASPHYXIA [None]
  - DRUG TOXICITY [None]
  - PULMONARY CONGESTION [None]
  - PULMONARY OEDEMA [None]
